FAERS Safety Report 6444909-6 (Version None)
Quarter: 2009Q4

REPORT INFORMATION
  Report Type: 
  Country: None (occurrence: None)
  Receive Date: 20091117
  Receipt Date: 20091117
  Transmission Date: 20100525
  Serious: No
  Sender: FDA-Public Use
  Company Number: None

PATIENT
  Sex: Female

DRUGS (1)
  1. ZYVOX [Suspect]
     Dosage: 600MG Q12HRS EVERY 12 HOURS ORAL
     Route: 048
     Dates: start: 20091001, end: 20091010

REACTIONS (2)
  - HYPOAESTHESIA [None]
  - TREMOR [None]
